FAERS Safety Report 8791351 (Version 1)
Quarter: 2012Q4

REPORT INFORMATION
  Report Type: Spontaneous
  Country: US (occurrence: None)
  Receive Date: 20120912
  Receipt Date: 20120912
  Transmission Date: 20130627
  Serious: Yes (Other)
  Sender: FDA-Public Use
  Company Number: 138849

PATIENT
  Age: 61 Year

DRUGS (3)
  1. ADRIAMYCIN [Suspect]
  2. VELCADE [Concomitant]
  3. PAMIDRONATE [Concomitant]

REACTIONS (1)
  - Renal failure acute [None]
